FAERS Safety Report 17870494 (Version 1)
Quarter: 2020Q2

REPORT INFORMATION
  Report Type: Spontaneous
  Country: US (occurrence: US)
  Receive Date: 20200608
  Receipt Date: 20200608
  Transmission Date: 20200714
  Serious: No
  Sender: FDA-Public Use
  Company Number: US-PFIZER INC-2020221695

PATIENT
  Age: 52 Year

DRUGS (1)
  1. PREMPRO [Suspect]
     Active Substance: ESTROGENS, CONJUGATED\MEDROXYPROGESTERONE ACETATE
     Dosage: UNK (0.3 MG-1.5 MG QUANTITY FOR 90 DAYS: 90)

REACTIONS (2)
  - Asthma [Unknown]
  - Drug hypersensitivity [Unknown]
